FAERS Safety Report 6782569-5 (Version None)
Quarter: 2010Q2

REPORT INFORMATION
  Report Type: 
  Country: None (occurrence: None)
  Receive Date: 20100621
  Receipt Date: 20100617
  Transmission Date: 20101027
  Serious: Yes (Other)
  Sender: FDA-Public Use
  Company Number: US-RB-011614-10

PATIENT
  Sex: Female

DRUGS (2)
  1. SUBOXONE [Suspect]
     Route: 048
     Dates: start: 20100612, end: 20100616
  2. SUBOXONE [Suspect]
     Route: 060
     Dates: start: 20100617

REACTIONS (11)
  - ANXIETY [None]
  - BLOOD ELECTROLYTES ABNORMAL [None]
  - DRUG WITHDRAWAL SYNDROME [None]
  - DYSARTHRIA [None]
  - EMOTIONAL DISORDER [None]
  - FLANK PAIN [None]
  - INCORRECT ROUTE OF DRUG ADMINISTRATION [None]
  - INSOMNIA [None]
  - LOSS OF CONSCIOUSNESS [None]
  - SOMNOLENCE [None]
  - THINKING ABNORMAL [None]
